FAERS Safety Report 9161061 (Version 2)
Quarter: 2013Q2

REPORT INFORMATION
  Report Type: Report from Study
  Country: DE (occurrence: DE)
  Receive Date: 20130313
  Receipt Date: 20130426
  Transmission Date: 20140414
  Serious: Yes (Other)
  Sender: FDA-Public Use
  Company Number: DE-ABBOTT-13P-062-1058913-00

PATIENT
  Age: 72 Year
  Sex: Female

DRUGS (8)
  1. HUMIRA [Suspect]
     Indication: RHEUMATOID ARTHRITIS
     Route: 058
     Dates: start: 201009, end: 20130327
  2. ARAVA [Concomitant]
     Indication: RHEUMATOID ARTHRITIS
  3. SULFASALAZINE [Concomitant]
     Indication: RHEUMATOID ARTHRITIS
  4. FEMARA [Concomitant]
     Indication: BREAST CANCER FEMALE
  5. CALCIUM [Concomitant]
     Indication: OSTEOPENIA
  6. CALCIUM [Concomitant]
     Indication: PROPHYLAXIS
  7. VITAMIN D NOS [Concomitant]
     Indication: OSTEOPENIA
  8. VITAMIN D NOS [Concomitant]
     Indication: PROPHYLAXIS

REACTIONS (5)
  - Myelodysplastic syndrome [Not Recovered/Not Resolved]
  - Refractory anaemia with an excess of blasts [Not Recovered/Not Resolved]
  - Leukopenia [Not Recovered/Not Resolved]
  - Lymphocyte count decreased [Unknown]
  - C-reactive protein increased [Unknown]
